FAERS Safety Report 4696038-X (Version None)
Quarter: 2005Q2

REPORT INFORMATION
  Report Type: 
  Country: None (occurrence: None)
  Receive Date: 20050620
  Receipt Date: 20050616
  Transmission Date: 20051028
  Serious: No
  Sender: FDA-Public Use
  Company Number: B0305538A

PATIENT
  Age: 64 Year
  Sex: Female

DRUGS (3)
  1. AVANDIA [Suspect]
     Indication: DIABETES MELLITUS NON-INSULIN-DEPENDENT
     Dosage: 4 MG / PER DAY / ORAL
     Route: 048
     Dates: start: 20010901
  2. METFORMIN HCL [Concomitant]
  3. FENOFIBRATE [Concomitant]

REACTIONS (5)
  - APOLIPOPROTEIN A-I DECREASED [None]
  - APOLIPOPROTEIN A-II DECREASED [None]
  - BLOOD TRIGLYCERIDES INCREASED [None]
  - GLYCOSYLATED HAEMOGLOBIN INCREASED [None]
  - HIGH DENSITY LIPOPROTEIN DECREASED [None]
